FAERS Safety Report 5188103-8 (Version None)
Quarter: 2006Q4

REPORT INFORMATION
  Report Type: 
  Country: None (occurrence: None)
  Receive Date: 20061214
  Receipt Date: 20061214
  Transmission Date: 20070319
  Serious: Yes (Life-Threatening, Hospitalization)
  Sender: FDA-Public Use
  Company Number: None

PATIENT
  Age: 22 Year
  Sex: Female

DRUGS (3)
  1. VALTREX [Suspect]
     Indication: HERPES SIMPLEX
     Dosage: PO  FEW DAYS BEFORE
     Route: 048
  2. ASPIRIN [Suspect]
     Dosage: PO
     Route: 048
  3. IBUPROFEN [Suspect]
     Indication: BACK PAIN

REACTIONS (5)
  - ABDOMINAL PAIN [None]
  - BACK PAIN [None]
  - NAUSEA [None]
  - RENAL FAILURE ACUTE [None]
  - VOMITING [None]
